FAERS Safety Report 6152555-7 (Version None)
Quarter: 2009Q2

REPORT INFORMATION
  Report Type: 
  Country: None (occurrence: None)
  Receive Date: 20090413
  Receipt Date: 20090409
  Transmission Date: 20091009
  Serious: Yes (Other)
  Sender: FDA-Public Use
  Company Number: BR-B.I. PHARMACEUTICALS,INC./RIDGEFIELD-2009-BR-00272BR

PATIENT
  Age: 49 Year
  Sex: Male

DRUGS (8)
  1. ATENSINA [Suspect]
     Indication: HYPERTENSION
     Dosage: .6MG
     Route: 048
     Dates: start: 20070101
  2. PROPRANOLOL [Concomitant]
     Indication: HYPERTENSION
  3. NIFEDIPINE [Concomitant]
     Indication: HYPERTENSION
  4. APRESOLINA [Concomitant]
     Indication: HYPERTENSION
  5. LOSARTAN POTASSIUM [Concomitant]
     Indication: HYPERTENSION
  6. COMPLEX B [Concomitant]
     Indication: VITAMIN SUPPLEMENTATION
  7. FOLIC ACID [Concomitant]
     Indication: HAEMODIALYSIS
  8. OMEPRAZOLE [Concomitant]
     Indication: DRUG THERAPY

REACTIONS (2)
  - BLOOD PRESSURE INCREASED [None]
  - DRUG INEFFECTIVE [None]
